FAERS Safety Report 11084426 (Version 1)
Quarter: 2015Q2

REPORT INFORMATION
  Report Type: Spontaneous
  Country: JP (occurrence: JP)
  Receive Date: 20150503
  Receipt Date: 20150503
  Transmission Date: 20150821
  Serious: Yes (Other)
  Sender: FDA-Public Use
  Company Number: JP-TEVA-558818ISR

PATIENT
  Age: 68 Year
  Sex: Female

DRUGS (5)
  1. CYCLOPHOSPHAMIDE. [Concomitant]
     Active Substance: CYCLOPHOSPHAMIDE
     Indication: MONONEUROPATHY MULTIPLEX
     Dosage: 750 MG/M2 ON DAY 1
     Route: 065
  2. DOXORUBICIN [Concomitant]
     Active Substance: DOXORUBICIN
     Indication: MONONEUROPATHY MULTIPLEX
     Dosage: 50 MG/M2 ON DAY 1
     Route: 065
  3. VINCRISTINE [Concomitant]
     Active Substance: VINCRISTINE
     Indication: MONONEUROPATHY MULTIPLEX
     Dosage: 1.4 MG/M2 ON DAY 1
     Route: 065
  4. PREDNISOLONE. [Concomitant]
     Active Substance: PREDNISOLONE
     Indication: MONONEUROPATHY MULTIPLEX
     Dosage: 100 MG/BODY [SIC] DAY 1-5
     Route: 065
  5. FILGRASTIM [Suspect]
     Active Substance: FILGRASTIM
     Indication: AGRANULOCYTOSIS
     Route: 065

REACTIONS (1)
  - Interstitial lung disease [Unknown]
